FAERS Safety Report 9511539 (Version 1)
Quarter: 2013Q3

REPORT INFORMATION
  Report Type: Spontaneous
  Country: US (occurrence: None)
  Receive Date: 20130909
  Receipt Date: 20130909
  Transmission Date: 20140515
  Serious: No
  Sender: FDA-Public Use
  Company Number: None

PATIENT
  Age: 21 Year
  Sex: Female
  Weight: 77.11 kg

DRUGS (1)
  1. PARAGARD [Suspect]
     Dates: start: 20130906, end: 20130906

REACTIONS (3)
  - Nausea [None]
  - Vomiting [None]
  - Pain [None]
